FAERS Safety Report 7895070-2 (Version None)
Quarter: 2011Q4

REPORT INFORMATION
  Report Type: 
  Country: None (occurrence: None)
  Receive Date: 20111106
  Receipt Date: 20110822
  Transmission Date: 20120403
  Serious: No
  Sender: FDA-Public Use
  Company Number: US-AMGEN-USASP2011042987

PATIENT
  Sex: Male
  Weight: 83.9 kg

DRUGS (2)
  1. ENBREL [Suspect]
     Indication: RHEUMATOID ARTHRITIS
     Dosage: ONE IN TWO WEEKS
     Route: 065
     Dates: start: 20100101
  2. HUMIRA [Concomitant]
     Dosage: 40MG/0.8 ML

REACTIONS (2)
  - INJECTION SITE PAIN [None]
  - THERAPEUTIC RESPONSE DECREASED [None]
